FAERS Safety Report 10233041 (Version 1)
Quarter: 2014Q2

REPORT INFORMATION
  Report Type: Spontaneous
  Country: US (occurrence: US)
  Receive Date: 20140612
  Receipt Date: 20140612
  Transmission Date: 20141212
  Serious: No
  Sender: FDA-Public Use
  Company Number: US-PFIZER INC-2014156040

PATIENT
  Sex: Female

DRUGS (12)
  1. LYRICA [Suspect]
     Dosage: 75 MG, 2X/DAY
     Route: 048
  2. ROPINIROLE HYDROCHLORIDE [Concomitant]
     Dosage: 0.25 MG, 1X/DAY (1 TO 3 HRS BEFORE BEDTIME ORALLY ONCE A DAY)
     Route: 048
  3. OMEPRAZOLE [Concomitant]
     Dosage: 40 MG, 2X/DAY (1 CAPSULE ORALLY TWICE DAILY, 30 MIN BEFORE MEAL)
     Route: 048
  4. VESICARE [Concomitant]
     Dosage: 5 MG, 1X/DAY
     Route: 048
  5. MIRTAZAPINE [Concomitant]
     Dosage: 15 MG, DAILY (1 TABLET BEFORE BEDTIME IN THE EVENING ORALLY DAILY)
     Route: 048
  6. MIRTAZAPINE [Concomitant]
     Dosage: 15 MG, 1X/DAY (1 TABLET BEFORE BEDTIME IN THE EVENING ORALLY ONCE A DAY)
     Route: 048
  7. REQUIP [Concomitant]
     Indication: RESTLESS LEGS SYNDROME
     Dosage: 0.25 MG, 1X/DAY (1 TABLET ORALLY TWO HRS BEFORE BEDTIME)
     Route: 048
  8. LIPITOR [Concomitant]
     Dosage: 10 MG, 1X/DAY (1 TABLET ORALLY AT BEDTIME)
     Route: 048
  9. ESCITALOPRAM OXALATE [Concomitant]
     Dosage: 10 MG, 1X/DAY (1 TABLET ORALLY ONCE A DAY)
     Route: 048
  10. CYANOCOBALAMIN [Concomitant]
     Dosage: 1 ML, MONTHLY
     Route: 030
  11. ASPIRIN (E.C.) [Concomitant]
     Dosage: 81 MG, DAILY (1 TABLET ORALLY DAILY)
     Route: 048
  12. ATENOLOL [Concomitant]
     Dosage: 50 MG, DAILY
     Route: 048

REACTIONS (3)
  - Off label use [Unknown]
  - Drug hypersensitivity [Unknown]
  - Formication [Unknown]
